FAERS Safety Report 12235551 (Version 2)
Quarter: 2016Q2

REPORT INFORMATION
  Report Type: Spontaneous
  Country: US (occurrence: US)
  Receive Date: 20160404
  Receipt Date: 20160427
  Transmission Date: 20160815
  Serious: Yes (Hospitalization)
  Sender: FDA-Public Use
  Company Number: US-PFIZER INC-2016184541

PATIENT
  Age: 60 Year
  Sex: Male

DRUGS (16)
  1. AGGRENOX [Concomitant]
     Active Substance: ASPIRIN\DIPYRIDAMOLE
     Dosage: 1 DF, 2X/DAY (1 TABLET ORAL TWO TIMES A DAY ACETYLSALICYLIC ACID 200MG, DIPYRIDAMOLE 25MG)
     Route: 048
  2. ALPHAGAN P [Concomitant]
     Active Substance: BRIMONIDINE TARTRATE
     Dosage: 3 GTT, DAILY
     Route: 047
  3. CARDIZEM LA [Concomitant]
     Active Substance: DILTIAZEM HYDROCHLORIDE
     Dosage: 120 MG, DAILY
     Route: 048
  4. XELJANZ [Suspect]
     Active Substance: TOFACITINIB CITRATE
     Indication: RHEUMATOID ARTHRITIS
     Dosage: 5 MG, 2X/DAY
     Route: 048
     Dates: start: 20150714, end: 20151016
  5. RECLAST [Concomitant]
     Active Substance: ZOLEDRONIC ACID
     Dosage: UNK (5 MG/100 ML SOLUTION)
     Route: 042
  6. CARAFATE [Concomitant]
     Active Substance: SUCRALFATE
     Dosage: UNK UNK, AS NEEDED (1 G/10 ML SUSPENSION FOUR TIMES A DAY AS NEEDED)
     Route: 048
  7. LIDODERM [Concomitant]
     Active Substance: LIDOCAINE
     Dosage: UNK (5% FILM, 1-3 PATCHES TOPICAL)
     Route: 061
  8. LINZESS [Concomitant]
     Active Substance: LINACLOTIDE
     Dosage: 145 UG, DAILY
     Route: 048
  9. TRAVATAN Z [Concomitant]
     Active Substance: TRAVOPROST
     Dosage: 1 GTT, DAILY (IN RIGHT EYE )
     Route: 047
  10. PREDNISONE. [Concomitant]
     Active Substance: PREDNISONE
     Dosage: 5 MG, DAILY
     Route: 048
  11. FLECAINIDE [Concomitant]
     Active Substance: FLECAINIDE
     Dosage: 50 MG, 2X/DAY
     Route: 048
  12. OMEPRAZOLE. [Concomitant]
     Active Substance: OMEPRAZOLE
     Dosage: 40 MG, 2X/DAY
     Route: 048
  13. AZOPT [Concomitant]
     Active Substance: BRINZOLAMIDE
     Dosage: 3 GTT, DAILY
     Route: 047
  14. PREDNISONE. [Concomitant]
     Active Substance: PREDNISONE
     Dosage: 1 MG, DAILY
     Route: 048
  15. LORTAB [Concomitant]
     Active Substance: ACETAMINOPHEN\HYDROCODONE BITARTRATE
     Dosage: 1 DF, AS NEEDED (1 TABLET ORAL TWO TIMES A DAY) (HYDROCODONE: 5 MG; ACETAMINOPHEN: 325 MG)
     Route: 048
  16. SIMVASTATIN. [Concomitant]
     Active Substance: SIMVASTATIN
     Dosage: 20 MG, DAILY
     Route: 048

REACTIONS (1)
  - Thrombocytopenia [Recovered/Resolved]
